FAERS Safety Report 24623506 (Version 2)
Quarter: 2024Q4

REPORT INFORMATION
  Report Type: Spontaneous
  Country: JP (occurrence: JP)
  Receive Date: 20241115
  Receipt Date: 20241119
  Transmission Date: 20250115
  Serious: Yes (Other)
  Sender: UCB
  Company Number: JP-UCBJ-CD202408037UCBPHAPROD

PATIENT
  Age: 55 Year
  Sex: Female

DRUGS (1)
  1. BIMZELX [Suspect]
     Active Substance: BIMEKIZUMAB-BKZX
     Indication: Psoriatic arthropathy
     Dosage: 160 MILLIGRAM, EV 4 WEEKS
     Route: 058
     Dates: start: 20240408, end: 20240827

REACTIONS (3)
  - Pyelonephritis [Recovering/Resolving]
  - Ureterolithiasis [Recovering/Resolving]
  - Ureteric calculus removal [Recovering/Resolving]

NARRATIVE: CASE EVENT DATE: 20240831
